FAERS Safety Report 5562419-5 (Version None)
Quarter: 2007Q4

REPORT INFORMATION
  Report Type: 
  Country: None (occurrence: None)
  Receive Date: 20071215
  Receipt Date: 20070131
  Transmission Date: 20080405
  Serious: No
  Sender: FDA-Public Use
  Company Number: US-AMGEN-US208169

PATIENT
  Sex: Male
  Weight: 90.8 kg

DRUGS (3)
  1. ENBREL [Suspect]
     Indication: PSORIASIS
     Route: 058
     Dates: start: 20060825
  2. VICODIN [Concomitant]
     Route: 065
  3. METFORMIN HCL [Concomitant]
     Route: 065
     Dates: start: 20061001

REACTIONS (3)
  - BASAL CELL CARCINOMA [None]
  - DERMAL CYST [None]
  - PROCEDURAL PAIN [None]
